FAERS Safety Report 5890454-6 (Version None)
Quarter: 2008Q3

REPORT INFORMATION
  Report Type: 
  Country: None (occurrence: None)
  Receive Date: 20080922
  Receipt Date: 20080909
  Transmission Date: 20090109
  Serious: Yes (Other)
  Sender: FDA-Public Use
  Company Number: SI-JNJFOC-20080903213

PATIENT
  Age: 17 Year
  Sex: Male

DRUGS (2)
  1. INFLIXIMAB [Suspect]
     Indication: PSORIATIC ARTHROPATHY
     Route: 042
  2. LEFLUNOMIDE [Suspect]
     Indication: PSORIATIC ARTHROPATHY

REACTIONS (7)
  - HEPATIC ENZYME INCREASED [None]
  - HYPERSENSITIVITY [None]
  - LEUKOPENIA [None]
  - PLATELET COUNT ABNORMAL [None]
  - THROMBOCYTOPENIA [None]
  - VASCULITIC RASH [None]
  - WHITE BLOOD CELL COUNT ABNORMAL [None]
